FAERS Safety Report 4302990-4 (Version None)
Quarter: 2004Q1

REPORT INFORMATION
  Report Type: 
  Country: None (occurrence: None)
  Receive Date: 20040224
  Receipt Date: 20040119
  Transmission Date: 20041129
  Serious: Yes (Hospitalization)
  Sender: FDA-Public Use
  Company Number: JP-GLAXOSMITHKLINE-B0320447A

PATIENT
  Age: 73 Year
  Sex: Female
  Weight: 53 kg

DRUGS (18)
  1. VALTREX [Suspect]
     Indication: HERPES ZOSTER
     Dosage: 1000MG PER DAY
     Route: 048
     Dates: start: 20040107, end: 20040108
  2. HAEMODIALYSIS [Concomitant]
  3. MECOBALAMIN [Concomitant]
     Indication: HERPES ZOSTER
     Dosage: .5MG PER DAY
     Route: 048
     Dates: start: 20040107, end: 20040108
  4. BENDAZAC [Concomitant]
     Indication: HERPES ZOSTER
     Dosage: 2G PER DAY
     Route: 061
     Dates: start: 20040107
  5. LOXOPROFEN SODIUM [Concomitant]
     Indication: ARTHROPATHY
     Dosage: 60MG PER DAY
     Route: 048
     Dates: start: 20031222
  6. D-CHLORPHENIRAMINE MALEATE [Concomitant]
     Indication: PRURITUS
     Dosage: 2MG PER DAY
     Route: 048
     Dates: start: 20030623
  7. SENNOSIDE [Concomitant]
     Indication: CONSTIPATION
     Dosage: 24MG PER DAY
     Route: 048
     Dates: start: 20030623
  8. LOSARTAN POTASSIUM [Concomitant]
     Indication: HYPERTENSION
     Dosage: 100MG PER DAY
     Route: 048
     Dates: start: 20010702
  9. FAMOTIDINE [Concomitant]
     Indication: GASTRITIS
     Dosage: 20MG PER DAY
     Route: 048
     Dates: start: 20011126
  10. FUROSEMIDE [Concomitant]
     Indication: HYPERTENSION
     Dosage: 20MG PER DAY
     Route: 048
     Dates: start: 20000818
  11. AMLODIPINE BESYLATE [Concomitant]
     Indication: HYPERTENSION
     Dosage: 5MG PER DAY
     Route: 048
     Dates: start: 20000818
  12. AZOSEMIDE [Concomitant]
     Indication: OEDEMA
     Dosage: 60MG PER DAY
     Route: 048
     Dates: start: 20000818
  13. ALFACALCIDOL [Concomitant]
     Indication: OSTEOPOROSIS
     Dosage: .5MCG PER DAY
     Route: 048
     Dates: start: 20011015
  14. TEPRENONE [Concomitant]
     Indication: GASTRITIS
     Dosage: 150MG PER DAY
     Route: 048
     Dates: start: 20030620
  15. SEVELAMER HYDROCHLORIDE [Concomitant]
     Indication: HYPERPHOSPHATAEMIA
     Dosage: 1500MG PER DAY
     Route: 048
     Dates: start: 20030919
  16. AMEZINIUM METILSULFATE [Concomitant]
     Indication: HYPOTENSION
     Dosage: 10MG PER DAY
     Route: 048
     Dates: start: 20030820
  17. DIFLORASONE DIACETATE [Concomitant]
     Indication: PRURITUS
     Dosage: 5G PER DAY
     Route: 061
     Dates: start: 20020408
  18. ZINC OXIDE [Concomitant]
     Dosage: 5G PER DAY
     Route: 061
     Dates: start: 20020408

REACTIONS (9)
  - DEPRESSED LEVEL OF CONSCIOUSNESS [None]
  - DIZZINESS [None]
  - GAIT DISTURBANCE [None]
  - NAUSEA [None]
  - NERVOUS SYSTEM DISORDER [None]
  - SPEECH DISORDER [None]
  - VERTEBROBASILAR INSUFFICIENCY [None]
  - VERTIGO [None]
  - VOMITING [None]
